FAERS Safety Report 10236620 (Version 1)
Quarter: 2014Q1

REPORT INFORMATION
  Report Type: Spontaneous
  Country: US (occurrence: None)
  Receive Date: 20140306
  Receipt Date: 20140306
  Transmission Date: 20141002
  Serious: Yes (Disabling)
  Sender: FDA-Public Use
  Company Number: 163-21880-13081958

PATIENT
  Age: 69 Year
  Sex: Male
  Weight: 84.28 kg

DRUGS (2)
  1. REVLIMID (LENALIDOMIDE) (25 MILLIGRAM, CAPSULES) [Suspect]
     Indication: PLASMA CELL MYELOMA
     Route: 048
     Dates: start: 200811
  2. DECADRON (DEXAMETHASONE) (UNKNOWN) [Concomitant]

REACTIONS (1)
  - Renal failure [None]
